FAERS Safety Report 9868351 (Version 2)
Quarter: 2014Q1

REPORT INFORMATION
  Report Type: Spontaneous
  Country: US (occurrence: US)
  Receive Date: 20140204
  Receipt Date: 20140204
  Transmission Date: 20141002
  Serious: Yes (Hospitalization)
  Sender: FDA-Public Use
  Company Number: US-B.I. PHARMACEUTICALS,INC./RIDGEFIELD-2013-BI-42656BP

PATIENT
  Sex: Female
  Weight: 54.43 kg

DRUGS (7)
  1. PRADAXA [Suspect]
     Indication: PRODUCT USED FOR UNKNOWN INDICATION
     Dosage: 150 MG
     Dates: start: 20120114, end: 20120229
  2. DYAZIDE [Concomitant]
     Route: 048
  3. PRIMIDONE [Concomitant]
     Dosage: 25 MG
  4. DIGOXIN [Concomitant]
     Dosage: 0.125 MG
  5. PAROXETINE [Concomitant]
     Dosage: 40 MG
  6. LABETALOL [Concomitant]
     Dosage: 200 MG
  7. XANAX [Concomitant]
     Dosage: 1.5 MG

REACTIONS (6)
  - Subdural haematoma [Unknown]
  - Acute respiratory failure [Unknown]
  - Urinary tract infection [Unknown]
  - Haemorrhagic stroke [Unknown]
  - Convulsion [Unknown]
  - Fall [Unknown]
